FAERS Safety Report 9830910 (Version 6)
Quarter: 2014Q2

REPORT INFORMATION
  Report Type: Report from Study
  Country: JP (occurrence: JP)
  Receive Date: 20140120
  Receipt Date: 20140607
  Transmission Date: 20141212
  Serious: Yes (Death)
  Sender: FDA-Public Use
  Company Number: PHHO2014JP000861

PATIENT
  Age: 85 Year
  Sex: Female
  Weight: 33 kg

DRUGS (7)
  1. EXELON [Suspect]
     Indication: DEMENTIA ALZHEIMER^S TYPE
     Dosage: 1-STEP TITRATION
     Route: 062
     Dates: start: 20130904
  2. PLETAAL [Suspect]
     Indication: PROPHYLAXIS
     Dosage: 100 MG, UNK
     Route: 048
     Dates: start: 20100825, end: 20140103
  3. KALGUT [Suspect]
     Indication: CARDIAC FAILURE CHRONIC
     Dosage: 10 MG, UNK
     Route: 048
     Dates: start: 20100406, end: 20140103
  4. GASTER D [Suspect]
     Indication: GASTRITIS
     Dosage: 20 MG, UNK
     Route: 048
     Dates: start: 20100223, end: 20140103
  5. ASPARA-CA [Suspect]
     Indication: OSTEOPOROSIS
     Dosage: 400 MG, UNK
     Route: 048
     Dates: start: 20091201, end: 20140103
  6. ONEALFA [Suspect]
     Indication: OSTEOPOROSIS
     Dosage: 0.25 UG, UNK
     Route: 048
     Dates: start: 20100407, end: 20140103
  7. CROTAMITON [Suspect]
     Indication: PRURITUS
     Route: 062
     Dates: start: 20131029, end: 20140103

REACTIONS (2)
  - Marasmus [Fatal]
  - Sudden cardiac death [Fatal]
